FAERS Safety Report 5357982-3 (Version None)
Quarter: 2007Q2

REPORT INFORMATION
  Report Type: 
  Country: None (occurrence: None)
  Receive Date: 20070530
  Receipt Date: 20061206
  Transmission Date: 20071010
  Serious: Yes (Other)
  Sender: FDA-Public Use
  Company Number: US200612003647

PATIENT
  Age: 44 Year
  Sex: Female
  Weight: 66.7 kg

DRUGS (1)
  1. ZYPREXA [Suspect]

REACTIONS (3)
  - BLOOD CHOLESTEROL ABNORMAL [None]
  - DIABETES MELLITUS [None]
  - DIABETIC COMA [None]
